FAERS Safety Report 15875937 (Version 1)
Quarter: 2019Q1

REPORT INFORMATION
  Report Type: Spontaneous
  Country: DE (occurrence: DE)
  Receive Date: 20190126
  Receipt Date: 20190126
  Transmission Date: 20190417
  Serious: Yes (Other)
  Sender: FDA-Public Use
  Company Number: PHHY2019DE015871

PATIENT
  Sex: Female

DRUGS (2)
  1. THYROXINE [Concomitant]
     Active Substance: LEVOTHYROXINE
     Indication: AUTOIMMUNE THYROIDITIS
     Dosage: UNK
     Route: 065
  2. SANDOSTATIN [Suspect]
     Active Substance: OCTREOTIDE ACETATE
     Indication: METASTASIS
     Dosage: UNK
     Route: 065

REACTIONS (5)
  - Blood thyroid stimulating hormone increased [Unknown]
  - Concomitant disease aggravated [Unknown]
  - Autoimmune thyroiditis [Unknown]
  - Polycystic ovaries [Unknown]
  - Ovarian cyst [Unknown]
